FAERS Safety Report 11733159 (Version 2)
Quarter: 2015Q4

REPORT INFORMATION
  Report Type: Report from Study
  Country: FR (occurrence: FR)
  Receive Date: 20151113
  Receipt Date: 20151210
  Transmission Date: 20160304
  Serious: Yes (Death, Hospitalization)
  Sender: FDA-Public Use
  Company Number: FR-ACTELION-A-CH2015-126928

PATIENT
  Age: 84 Year
  Sex: Female
  Weight: 62 kg

DRUGS (8)
  1. TRACLEER [Suspect]
     Active Substance: BOSENTAN
     Dosage: 62.5 MG, BID
     Route: 048
     Dates: start: 20130608, end: 20131129
  2. PREDNISONE. [Concomitant]
     Active Substance: PREDNISONE
  3. DIFFU K [Concomitant]
     Active Substance: POTASSIUM CHLORIDE
  4. ESOMEPRAZOLE [Concomitant]
     Active Substance: ESOMEPRAZOLE
  5. ALDACTONE [Concomitant]
     Active Substance: SPIRONOLACTONE
  6. FUROSEMIDE. [Concomitant]
     Active Substance: FUROSEMIDE
  7. TRACLEER [Suspect]
     Active Substance: BOSENTAN
     Indication: SCLERODERMA ASSOCIATED DIGITAL ULCER
     Dosage: UNK UNK
     Route: 048
     Dates: end: 20140222
  8. KARDEGIC [Suspect]
     Active Substance: ASPIRIN LYSINE
     Indication: PRODUCT USED FOR UNKNOWN INDICATION
     Route: 065

REACTIONS (10)
  - Acute kidney injury [Unknown]
  - Urinary bladder haemorrhage [Unknown]
  - Septic shock [Fatal]
  - General physical health deterioration [Fatal]
  - Bronchial obstruction [Fatal]
  - Hypothermia [Fatal]
  - Cyanosis [Fatal]
  - Pneumonia [Fatal]
  - Haematuria [Unknown]
  - Transfusion [Unknown]

NARRATIVE: CASE EVENT DATE: 20140222
